FAERS Safety Report 7583217-7 (Version None)
Quarter: 2011Q2

REPORT INFORMATION
  Report Type: 
  Country: None (occurrence: None)
  Receive Date: 20110630
  Receipt Date: 20110627
  Transmission Date: 20111010
  Serious: Yes (Death)
  Sender: FDA-Public Use
  Company Number: JP-SANOFI-AVENTIS-2010SA004204

PATIENT
  Age: 85 Year
  Sex: Male
  Weight: 36 kg

DRUGS (10)
  1. HOKUNALIN [Concomitant]
     Indication: EMPHYSEMA
     Route: 062
     Dates: start: 20090907
  2. RAMELTEON [Concomitant]
     Indication: PREMEDICATION
     Dates: start: 20091002, end: 20091216
  3. CELECOXIB [Concomitant]
     Route: 048
     Dates: start: 20090907
  4. PURSENNID /SCH/ [Concomitant]
     Indication: CONSTIPATION
     Route: 048
     Dates: start: 20090907
  5. ZYRTEC [Concomitant]
     Indication: RHINITIS ALLERGIC
     Route: 048
     Dates: start: 20090907
  6. MICARDIS [Concomitant]
     Indication: HYPERTENSION
     Route: 048
     Dates: start: 20090907
  7. MAGNESIUM OXIDE [Concomitant]
     Indication: CONSTIPATION
     Route: 048
     Dates: start: 20090907
  8. SPIRIVA [Concomitant]
     Indication: EMPHYSEMA
     Route: 055
     Dates: start: 20090907
  9. TAXOTERE [Suspect]
     Dosage: 25 MG/M2
     Route: 041
     Dates: start: 20091002, end: 20091216
  10. DECADRON [Concomitant]
     Indication: PREMEDICATION
     Dates: start: 20091002, end: 20091216

REACTIONS (3)
  - INTERSTITIAL LUNG DISEASE [None]
  - CONDITION AGGRAVATED [None]
  - LUNG NEOPLASM MALIGNANT [None]
